FAERS Safety Report 10592942 (Version 1)
Quarter: 2014Q4

REPORT INFORMATION
  Report Type: Spontaneous
  Country: GB (occurrence: US)
  Receive Date: 20141119
  Receipt Date: 20141119
  Transmission Date: 20150529
  Serious: Yes (Other)
  Sender: FDA-Public Use
  Company Number: GB-PFIZER INC-2014314159

PATIENT
  Age: 46 Year
  Sex: Male

DRUGS (1)
  1. SULFAMETHOXAZOLE/TRIMETHOPRIM [Suspect]
     Active Substance: SULFAMETHOXAZOLE\TRIMETHOPRIM
     Indication: PROSTATITIS
     Dosage: 20 MG/KG, DAILY IN DIVIDED DOSES
     Route: 042

REACTIONS (12)
  - Hypotension [Unknown]
  - Confusional state [Unknown]
  - Blood gases [None]
  - Hypoxia [Recovering/Resolving]
  - Respiratory failure [None]
  - Crepitations [None]
  - Anaphylactic reaction [None]
  - Respiratory distress [None]
  - Pyrexia [Unknown]
  - Rash macular [Unknown]
  - Lung infiltration [Recovering/Resolving]
  - Pulmonary oedema [None]
